FAERS Safety Report 19305359 (Version 5)
Quarter: 2021Q4

REPORT INFORMATION
  Report Type: Report from Study
  Country: US (occurrence: US)
  Receive Date: 20210526
  Receipt Date: 20211012
  Transmission Date: 20220303
  Serious: Yes (Death, Hospitalization, Other)
  Sender: FDA-Public Use
  Company Number: None

PATIENT
  Age: 76 Year
  Sex: Male

DRUGS (3)
  1. ARIKAYCE [Suspect]
     Active Substance: AMIKACIN
     Indication: Mycobacterium avium complex infection
     Dosage: 590 MILLIGRAM, QD
     Route: 055
     Dates: start: 20201205
  2. ARIKAYCE [Suspect]
     Active Substance: AMIKACIN
     Dosage: 295 MG, HALF A VIAL A DAY
     Route: 055
     Dates: start: 2021, end: 202104
  3. ARIKAYCE [Suspect]
     Active Substance: AMIKACIN
     Dosage: 295 MILLIGRAM, BIW
     Route: 055
     Dates: start: 2021

REACTIONS (26)
  - Death [Fatal]
  - Hospitalisation [Unknown]
  - Pulmonary resection [Unknown]
  - Illness [Unknown]
  - Increased viscosity of bronchial secretion [Unknown]
  - Tremor [Unknown]
  - White blood cell count decreased [Unknown]
  - Productive cough [Unknown]
  - Chest discomfort [Not Recovered/Not Resolved]
  - Hypoacusis [Unknown]
  - Feeling abnormal [Unknown]
  - Cough [Not Recovered/Not Resolved]
  - Fatigue [Not Recovered/Not Resolved]
  - Dysphonia [Unknown]
  - Malaise [Unknown]
  - Dyspnoea [Not Recovered/Not Resolved]
  - Drug ineffective [Unknown]
  - Therapy interrupted [Unknown]
  - Product dose omission issue [Unknown]
  - Product storage error [Unknown]
  - Product supply issue [Unknown]
  - Prescribed underdose [Unknown]
  - Device issue [Unknown]
  - Off label use [Unknown]
  - Incorrect dose administered [Unknown]
  - Intentional dose omission [Unknown]

NARRATIVE: CASE EVENT DATE: 20201201
